FAERS Safety Report 8599422 (Version 2)
Quarter: 2013Q1

REPORT INFORMATION
  Report Type: Report from Study
  Country: US (occurrence: US)
  Receive Date: 20120605
  Receipt Date: 20130321
  Transmission Date: 20140127
  Serious: Yes (Death, Other)
  Sender: FDA-Public Use
  Company Number: US-ROCHE-1071982

PATIENT
  Sex: 0

DRUGS (5)
  1. CAPECITABINE [Suspect]
     Indication: RECTAL CANCER
     Route: 065
  2. BEVACIZUMAB [Suspect]
     Indication: RECTAL CANCER
     Route: 065
  3. OXALIPLATIN [Suspect]
     Indication: RECTAL CANCER
     Route: 065
  4. FLUOROURACIL [Suspect]
     Indication: RECTAL CANCER
     Route: 065
  5. FOLINIC ACID [Suspect]
     Indication: RECTAL CANCER
     Route: 065

REACTIONS (10)
  - Aspiration [Fatal]
  - Proctalgia [Unknown]
  - Fatigue [Unknown]
  - Diarrhoea [Unknown]
  - Wound infection [Unknown]
  - Wound dehiscence [Unknown]
  - Abscess [Unknown]
  - Impaired healing [Unknown]
  - Intestinal obstruction [Unknown]
  - Ileus [Unknown]
